FAERS Safety Report 6884997-6 (Version None)
Quarter: 2010Q3

REPORT INFORMATION
  Report Type: 
  Country: None (occurrence: None)
  Receive Date: 20100729
  Receipt Date: 20071010
  Transmission Date: 20110219
  Serious: Yes (Other)
  Sender: FDA-Public Use
  Company Number: US-PFIZER INC-2007085098

PATIENT
  Sex: Male

DRUGS (3)
  1. CELEBREX [Suspect]
     Indication: ARTHRITIS
  2. CHANTIX [Suspect]
     Indication: EX-TOBACCO USER
     Dates: start: 20070801
  3. ALL OTHER THERAPEUTIC PRODUCTS [Concomitant]

REACTIONS (5)
  - CHEST PAIN [None]
  - HOT FLUSH [None]
  - HYPERSENSITIVITY [None]
  - RASH PRURITIC [None]
  - WEIGHT INCREASED [None]
